FAERS Safety Report 18634995 (Version 1)
Quarter: 2020Q4

REPORT INFORMATION
  Report Type: Report from Study
  Country: AU (occurrence: AU)
  Receive Date: 20201218
  Receipt Date: 20201218
  Transmission Date: 20210114
  Serious: Yes (Other)
  Sender: FDA-Public Use
  Company Number: AU-TAKEDA-AU202017362

PATIENT

DRUGS (1)
  1. 555 (PRUCALOPRIDE) [Suspect]
     Active Substance: PRUCALOPRIDE
     Indication: INTESTINAL OBSTRUCTION
     Dosage: 1 MILLIGRAM, QD
     Route: 048

REACTIONS (5)
  - Oesophageal disorder [Unknown]
  - Product use in unapproved indication [Unknown]
  - Gastrointestinal disorder [Unknown]
  - Off label use [Unknown]
  - Condition aggravated [Unknown]
